FAERS Safety Report 5143382-8 (Version None)
Quarter: 2006Q4

REPORT INFORMATION
  Report Type: 
  Country: None (occurrence: None)
  Receive Date: 20061030
  Receipt Date: 20061016
  Transmission Date: 20070319
  Serious: Yes (Life-Threatening, Hospitalization)
  Sender: FDA-Public Use
  Company Number: 2006110955

PATIENT
  Age: 76 Year
  Sex: Male
  Weight: 64.9 kg

DRUGS (10)
  1. TOLTERODINE TARTRATE [Suspect]
     Indication: HYPERTONIC BLADDER
     Dosage: 4 MG (FREQUENCY QD), ORAL
     Route: 048
     Dates: start: 20060913, end: 20060913
  2. TOLTERODINE TARTRATE [Suspect]
     Indication: URGE INCONTINENCE
     Dosage: 4 MG (FREQUENCY QD), ORAL
     Route: 048
     Dates: start: 20060913, end: 20060913
  3. TICLOPIDINE HCL [Concomitant]
  4. LANSOPRAZOLE [Concomitant]
  5. ARICEPT [Concomitant]
  6. TAMSULOSIN HCL [Concomitant]
  7. CARDENALIN (DOXAZOSIN) [Concomitant]
  8. FERROMIA (FERROUS CITRATE) [Concomitant]
  9. ALL OTHER THERAPEUTIC PRODUCTS (ALL OTHER THERAPEUTIC PRODUCTS) [Concomitant]
  10. METHIMAZOLE [Concomitant]

REACTIONS (2)
  - CHEST PAIN [None]
  - HYPERTENSIVE EMERGENCY [None]
